FAERS Safety Report 9730482 (Version 1)
Quarter: 2013Q4

REPORT INFORMATION
  Report Type: Spontaneous
  Country: US (occurrence: US)
  Receive Date: 20131202
  Receipt Date: 20131202
  Transmission Date: 20140711
  Serious: Yes (Hospitalization, Other)
  Sender: FDA-Public Use
  Company Number: US-PFIZER INC-2013340108

PATIENT
  Sex: Female

DRUGS (1)
  1. LYRICA [Suspect]
     Indication: NEURALGIA
     Dosage: 50 MG, 1X/DAY
     Dates: start: 20130906, end: 2013

REACTIONS (8)
  - Off label use [Unknown]
  - Pneumonia [Unknown]
  - Pyrexia [Unknown]
  - Platelet count decreased [Unknown]
  - Protein deficiency [Unknown]
  - Amnesia [Unknown]
  - Diarrhoea [Unknown]
  - Nausea [Unknown]
